FAERS Safety Report 25200347 (Version 1)
Quarter: 2025Q2

REPORT INFORMATION
  Report Type: Spontaneous
  Country: US (occurrence: US)
  Receive Date: 20250415
  Receipt Date: 20250415
  Transmission Date: 20250717
  Serious: Yes (Hospitalization)
  Sender: SANOFI AVENTIS
  Company Number: US-SA-2025SA106684

PATIENT
  Age: 66 Year
  Sex: Male

DRUGS (1)
  1. DUPIXENT [Suspect]
     Active Substance: DUPILUMAB
     Indication: Chronic obstructive pulmonary disease
     Dosage: 300 MG, QOW
     Route: 058
     Dates: start: 202503

REACTIONS (3)
  - Chronic obstructive pulmonary disease [Unknown]
  - Respiratory tract congestion [Unknown]
  - Weight decreased [Unknown]

NARRATIVE: CASE EVENT DATE: 20250301
